FAERS Safety Report 15158642 (Version 1)
Quarter: 2018Q3

REPORT INFORMATION
  Report Type: Spontaneous
  Country: US (occurrence: US)
  Receive Date: 20180620
  Receipt Date: 20180620
  Transmission Date: 20181010
  Serious: Yes (Other)
  Sender: FDA-Public Use
  Company Number: None

PATIENT
  Age: 73 Year
  Sex: Female
  Weight: 65.8 kg

DRUGS (2)
  1. PACLITAXEL. [Suspect]
     Active Substance: PACLITAXEL
     Indication: ENDOMETRIAL CANCER
     Dosage: ?          OTHER FREQUENCY:EVERY WEEK;?
     Route: 042
     Dates: start: 20180613, end: 20180613
  2. NORMAL SALINE [Concomitant]
     Active Substance: SODIUM CHLORIDE
     Dates: start: 20180613, end: 20180613

REACTIONS (6)
  - Chills [None]
  - Pruritus [None]
  - Erythema [None]
  - Infusion related reaction [None]
  - Cough [None]
  - Dysphagia [None]

NARRATIVE: CASE EVENT DATE: 20180613
